FAERS Safety Report 15967985 (Version 2)
Quarter: 2019Q1

REPORT INFORMATION
  Report Type: Spontaneous
  Country: AU (occurrence: AU)
  Receive Date: 20190215
  Receipt Date: 20190221
  Transmission Date: 20190418
  Serious: Yes (Other)
  Sender: FDA-Public Use
  Company Number: AU-PFIZER INC-2019066272

PATIENT
  Age: 33 Year
  Sex: Male

DRUGS (2)
  1. VANCOMYCIN HCL [Suspect]
     Active Substance: VANCOMYCIN HYDROCHLORIDE
     Indication: RHODOCOCCUS INFECTION
     Dosage: 1.25 G, 2X/DAY
  2. MEROPENEM. [Concomitant]
     Active Substance: MEROPENEM
     Indication: RHODOCOCCUS INFECTION
     Dosage: 1 G, 3X/DAY
     Route: 042

REACTIONS (1)
  - Pancytopenia [Unknown]
